FAERS Safety Report 4757785-4 (Version None)
Quarter: 2005Q3

REPORT INFORMATION
  Report Type: 
  Country: None (occurrence: None)
  Receive Date: 20050830
  Receipt Date: 20050818
  Transmission Date: 20060218
  Serious: Yes (Hospitalization)
  Sender: FDA-Public Use
  Company Number: USA-2004-0016396

PATIENT
  Age: 48 Year
  Sex: Female
  Weight: 82.5 kg

DRUGS (7)
  1. OXYCONTIN [Suspect]
     Indication: PAIN
     Dosage: 60 MG, DAILY, ORAL
     Route: 048
     Dates: start: 20031110, end: 20040206
  2. SU11248( ) [Suspect]
     Indication: ILL-DEFINED DISORDER
     Dosage: 50 MG, SEE TEXT, ORAL
     Route: 048
     Dates: start: 20031111, end: 20040122
  3. GLICLAZIDE (GLICLAZIDE) [Concomitant]
  4. LOSEC (OMEPRAZOLE) [Concomitant]
  5. ACETAMINOPHEN W/ CODEINE [Concomitant]
  6. COLOXYL WITH SENNA [Concomitant]
  7. LACTULOSE [Concomitant]

REACTIONS (8)
  - ABDOMINAL MASS [None]
  - ANAEMIA [None]
  - BILE DUCT OBSTRUCTION [None]
  - BILIARY TRACT DISORDER [None]
  - DISEASE PROGRESSION [None]
  - LYMPHADENOPATHY [None]
  - PORTAL VEIN OCCLUSION [None]
  - PYREXIA [None]
